FAERS Safety Report 13135095 (Version 1)
Quarter: 2017Q1

REPORT INFORMATION
  Report Type: Not Available
  Country: FR (occurrence: FR)
  Receive Date: 20170120
  Receipt Date: 20170120
  Transmission Date: 20170428
  Serious: Yes (Other)
  Sender: FDA-Public Use
  Company Number: FR-MIDATECHPHARMA-2017-FR-000003

PATIENT
  Age: 48 Year
  Sex: Male

DRUGS (7)
  1. LORAMYC [Suspect]
     Active Substance: MICONAZOLE
     Dosage: 50 MG DAILY
     Route: 048
     Dates: start: 20161107, end: 20161114
  2. AMIKACINE [Suspect]
     Active Substance: AMIKACIN
     Dosage: 750 MG DAILY
     Route: 042
     Dates: start: 20161103, end: 20161207
  3. EUPANTOL [Suspect]
     Active Substance: PANTOPRAZOLE SODIUM
     Dosage: 40 MG DAILY
     Route: 042
     Dates: start: 20161104, end: 20161116
  4. BACTRIM [Suspect]
     Active Substance: SULFAMETHOXAZOLE\TRIMETHOPRIM
     Dosage: 400 MG/80 MG DAILY
     Route: 048
     Dates: start: 20160628, end: 20161116
  5. FLUCONAZOLE. [Suspect]
     Active Substance: FLUCONAZOLE
     Dosage: 100 MG DAILY
     Route: 048
     Dates: start: 20161105, end: 20161107
  6. THALIDOMIDE [Suspect]
     Active Substance: THALIDOMIDE
     Dosage: 200 MG DAILY
     Route: 048
     Dates: start: 20160829, end: 20161116
  7. LOVENOX [Concomitant]
     Active Substance: ENOXAPARIN SODIUM
     Dosage: 4000 UNITS DAILY

REACTIONS (4)
  - Platelet count decreased [Unknown]
  - Neutropenia [Unknown]
  - Leukopenia [Unknown]
  - Agranulocytosis [Unknown]

NARRATIVE: CASE EVENT DATE: 20161110
